FAERS Safety Report 15108515 (Version 1)
Quarter: 2018Q3

REPORT INFORMATION
  Report Type: Spontaneous
  Country: US (occurrence: US)
  Receive Date: 20180705
  Receipt Date: 20180705
  Transmission Date: 20181010
  Serious: No
  Sender: FDA-Public Use
  Company Number: US-TEVA-788605ACC

PATIENT
  Sex: Male

DRUGS (1)
  1. PROPRANOLOL [Suspect]
     Active Substance: PROPRANOLOL HYDROCHLORIDE
     Dates: start: 20170711

REACTIONS (3)
  - Exposure via breast milk [Unknown]
  - Lactose intolerance [Unknown]
  - Rash [Unknown]

NARRATIVE: CASE EVENT DATE: 20170711
